FAERS Safety Report 25817914 (Version 1)
Quarter: 2025Q3

REPORT INFORMATION
  Report Type: Spontaneous
  Country: US (occurrence: EU)
  Receive Date: 20250918
  Receipt Date: 20250918
  Transmission Date: 20251020
  Serious: Yes (Life-Threatening, Hospitalization, Other)
  Sender: BAYER HEALTHCARE PHARMACEUTICALS INC.
  Company Number: US-BAYER-2025A121272

PATIENT
  Age: 76 Year
  Sex: Male
  Weight: 80 kg

DRUGS (7)
  1. NUBEQA [Suspect]
     Active Substance: DAROLUTAMIDE
     Dosage: 600 MG, BID
     Route: 048
     Dates: start: 20241202, end: 20250822
  2. ELIGARD [Suspect]
     Active Substance: LEUPROLIDE ACETATE
     Indication: Prostate cancer
     Dosage: 80 MG, Q3MON
     Route: 058
     Dates: start: 20241122, end: 20250822
  3. DOCETAXEL [Suspect]
     Active Substance: DOCETAXEL
     Indication: Prostate cancer
     Dosage: 138.69 MG, Q3WK
     Route: 042
     Dates: start: 20241209, end: 20250822
  4. ENALAPRIL [Concomitant]
     Active Substance: ENALAPRIL
     Indication: Hypertension
     Dosage: UNK UNK, QD
     Route: 048
  5. BISOPROLOL [Concomitant]
     Active Substance: BISOPROLOL
     Indication: Hypertension
     Dosage: 10 MG, QD
     Route: 048
  6. LERCANIDIPINE [Concomitant]
     Active Substance: LERCANIDIPINE
     Indication: Hypertension
     Dosage: UNK UNK, QD
     Route: 048
  7. ASPIRIN [Concomitant]
     Active Substance: ASPIRIN
     Dosage: 100 MG, QD
     Route: 048

REACTIONS (8)
  - Cardiac arrest [Recovered/Resolved]
  - Cardiomyopathy [Recovered/Resolved]
  - Ejection fraction decreased [Recovered/Resolved]
  - Pneumonia [Recovered/Resolved]
  - Myocarditis [Recovered/Resolved]
  - Hypoxia [Recovered/Resolved]
  - Left ventricular dysfunction [Recovered/Resolved]
  - Pulmonary hypertension [Recovered/Resolved]

NARRATIVE: CASE EVENT DATE: 20250822
